FAERS Safety Report 7327490-9 (Version None)
Quarter: 2011Q1

REPORT INFORMATION
  Report Type: 
  Country: None (occurrence: None)
  Receive Date: 20110303
  Receipt Date: 20110222
  Transmission Date: 20110831
  Serious: No
  Sender: FDA-Public Use
  Company Number: US-BIOGENIDEC-2010BI033057

PATIENT
  Sex: Female

DRUGS (2)
  1. TOPAMAX [Concomitant]
     Indication: HEADACHE
  2. TYSABRI [Suspect]
     Indication: MULTIPLE SCLEROSIS
     Route: 042
     Dates: start: 20100706

REACTIONS (7)
  - GAIT DISTURBANCE [None]
  - LOSS OF CONTROL OF LEGS [None]
  - HEADACHE [None]
  - ABDOMINAL DISCOMFORT [None]
  - DISTURBANCE IN ATTENTION [None]
  - FATIGUE [None]
  - MEMORY IMPAIRMENT [None]
